FAERS Safety Report 10703742 (Version 1)
Quarter: 2015Q1

REPORT INFORMATION
  Report Type: Spontaneous
  Country: NO (occurrence: NO)
  Receive Date: 20150112
  Receipt Date: 20150112
  Transmission Date: 20150721
  Serious: Yes (Death)
  Sender: FDA-Public Use
  Company Number: NO-SA-2015SA002290

PATIENT
  Age: 67 Year
  Sex: Male

DRUGS (2)
  1. BRILIQUE [Suspect]
     Active Substance: TICAGRELOR
     Dosage: LOADINGDOSE: 180 MG
     Route: 048
     Dates: start: 20141214, end: 20141215
  2. KLEXANE [Suspect]
     Active Substance: ENOXAPARIN
     Route: 058
     Dates: start: 20141214, end: 20141215

REACTIONS (2)
  - Subdural haematoma [Fatal]
  - Cerebral haemorrhage [Fatal]

NARRATIVE: CASE EVENT DATE: 20141215
